FAERS Safety Report 5472415-4 (Version None)
Quarter: 2007Q3

REPORT INFORMATION
  Report Type: 
  Country: None (occurrence: None)
  Receive Date: 20070927
  Receipt Date: 20070925
  Transmission Date: 20080115
  Serious: Yes (Other)
  Sender: FDA-Public Use
  Company Number: TCI2007A04960

PATIENT
  Age: 73 Year
  Sex: Male

DRUGS (8)
  1. LEUPROLIDE ACETATE [Suspect]
     Indication: PROSTATE CANCER STAGE III
     Dosage: 11.25 MG (11.25 MG, 1 IN 12 WK) SUBCUTANEOUS
     Route: 058
     Dates: start: 20060510, end: 20060726
  2. CASODEX [Concomitant]
  3. RANITAC (RANITIDINE HYDROCHLORIDE) (TABLETS) [Concomitant]
  4. ASPIRIN [Concomitant]
  5. NU-LOTAN (LOSARTAN POTASSIUM) (TABLETS) [Concomitant]
  6. HERBESSER (DILTIAZEM HYDROCHLORIDE) (UNKNOWN) [Concomitant]
  7. LIPITOR [Concomitant]
  8. GLUCOBAY (ACARBOSE) (TABLETS) [Concomitant]

REACTIONS (1)
  - PANCREATIC CARCINOMA [None]
